FAERS Safety Report 5751551-9 (Version None)
Quarter: 2008Q2

REPORT INFORMATION
  Report Type: 
  Country: None (occurrence: None)
  Receive Date: 20080528
  Receipt Date: 20080516
  Transmission Date: 20081010
  Serious: Yes (Hospitalization)
  Sender: FDA-Public Use
  Company Number: PHHO2008DE06371

PATIENT
  Sex: Male
  Weight: 80 kg

DRUGS (2)
  1. VALSARTAN [Suspect]
     Indication: HYPERTENSION
     Route: 048
  2. ERL 080A ERL+TAB [Suspect]
     Indication: RENAL TRANSPLANT
     Dosage: 720 MG, QD
     Route: 048
     Dates: start: 20071015

REACTIONS (4)
  - ANGIOPLASTY [None]
  - BLOOD CREATININE INCREASED [None]
  - RENAL ARTERY STENOSIS [None]
  - RENAL FAILURE ACUTE [None]
